FAERS Safety Report 26176727 (Version 1)
Quarter: 2025Q4

REPORT INFORMATION
  Report Type: Spontaneous
  Country: AU (occurrence: AU)
  Receive Date: 20251218
  Receipt Date: 20251218
  Transmission Date: 20260117
  Serious: Yes (Hospitalization)
  Sender: SERVIER
  Company Number: AU-SERVIER-S25017926

PATIENT

DRUGS (3)
  1. VORASIDENIB [Suspect]
     Active Substance: VORASIDENIB
     Indication: Malignant oligodendroglioma
     Dosage: 40 MG, QD
     Route: 048
     Dates: start: 202411
  2. KEPPRA [Concomitant]
     Active Substance: LEVETIRACETAM
     Indication: Attention deficit hyperactivity disorder
     Dosage: UNK
     Route: 065
  3. LACOSAMIDE [Concomitant]
     Active Substance: LACOSAMIDE
     Indication: Seizure
     Dosage: 150 MG, BID
     Route: 065

REACTIONS (2)
  - Psychotic disorder [Unknown]
  - Mental disorder [Unknown]
